FAERS Safety Report 6337231-X (Version None)
Quarter: 2009Q3

REPORT INFORMATION
  Report Type: 
  Country: None (occurrence: None)
  Receive Date: 20090902
  Receipt Date: 20090827
  Transmission Date: 20100115
  Serious: Yes (Hospitalization, Other)
  Sender: FDA-Public Use
  Company Number: US-BIOGENIDEC-2008BI030336

PATIENT
  Age: 54 Year
  Sex: Female

DRUGS (2)
  1. TYSABRI [Suspect]
     Indication: MULTIPLE SCLEROSIS
     Route: 042
     Dates: start: 20080723
  2. INSULIN [Concomitant]
     Indication: TYPE 1 DIABETES MELLITUS
     Dates: start: 20000101

REACTIONS (16)
  - BLOOD GLUCOSE DECREASED [None]
  - BLOOD GLUCOSE INCREASED [None]
  - BLOOD POTASSIUM DECREASED [None]
  - CONTUSION [None]
  - DEPRESSED MOOD [None]
  - DRUG HYPERSENSITIVITY [None]
  - FATIGUE [None]
  - HYPERSOMNIA [None]
  - INJECTION SITE HAEMORRHAGE [None]
  - KIDNEY INFECTION [None]
  - MULTIPLE SCLEROSIS [None]
  - MUSCLE ATROPHY [None]
  - OEDEMA PERIPHERAL [None]
  - OPTIC NEURITIS [None]
  - PYREXIA [None]
  - VITAMIN D DECREASED [None]
